FAERS Safety Report 20776448 (Version 1)
Quarter: 2022Q2

REPORT INFORMATION
  Report Type: Spontaneous
  Country: US (occurrence: US)
  Receive Date: 20220502
  Receipt Date: 20220502
  Transmission Date: 20220721
  Serious: No
  Sender: FDA-Public Use
  Company Number: US-PFIZER INC-2016452068

PATIENT
  Age: 66 Year
  Sex: Female

DRUGS (20)
  1. LYRICA [Suspect]
     Active Substance: PREGABALIN
     Dosage: 150 MG, 3X/DAY
     Route: 048
  2. VENTOLIN [Concomitant]
     Active Substance: ALBUTEROL SULFATE
     Indication: Cough
     Dosage: 90 MCG/ACTUATION (1-2 PUFFS EVERY 4-6 HOURS AS NEEDED)
  3. VENTOLIN [Concomitant]
     Active Substance: ALBUTEROL SULFATE
     Indication: Dyspnoea
  4. VENTOLIN [Concomitant]
     Active Substance: ALBUTEROL SULFATE
     Indication: Chest discomfort
  5. VENTOLIN [Concomitant]
     Active Substance: ALBUTEROL SULFATE
     Indication: Wheezing
  6. PROAIR HFA [Concomitant]
     Active Substance: ALBUTEROL SULFATE
     Indication: Cough
     Dosage: 90 MCG/ACTUATION (1-2 PUFFS EVERY 4-6 HOURS)
  7. PROAIR HFA [Concomitant]
     Active Substance: ALBUTEROL SULFATE
     Indication: Dyspnoea
  8. PROAIR HFA [Concomitant]
     Active Substance: ALBUTEROL SULFATE
     Indication: Chest discomfort
  9. PROAIR HFA [Concomitant]
     Active Substance: ALBUTEROL SULFATE
     Indication: Wheezing
  10. ELAVIL [Concomitant]
     Active Substance: AMITRIPTYLINE HYDROCHLORIDE
     Dosage: 25 MG, 1X/DAY (TAKE ONE TABLET (25 MG TOTAL) BY MOUTH EVERY NIGHT AT BEDTIME)
     Route: 048
  11. TENORMIN [Concomitant]
     Active Substance: ATENOLOL
     Dosage: 50 MG, 1X/DAY (TAKE ONE TABLET BY MOUTH ONCE A DAILY)
     Route: 048
  12. LIPITOR [Concomitant]
     Active Substance: ATORVASTATIN CALCIUM
     Dosage: 20 MG, 1X/DAY (TAKE 1 TABLET (20 MG TOTAL) BY MOUTH EVERY DAY)
     Route: 048
  13. WELLBUTRIN SR [Concomitant]
     Active Substance: BUPROPION HYDROCHLORIDE
     Dosage: 150 MG, 2X/DAY (TAKE 1 TABLET BY MOUTH TWICE A DAY)
     Route: 048
  14. ZYRTEC [Concomitant]
     Active Substance: CETIRIZINE HYDROCHLORIDE
     Dosage: 10 MG, 1X/DAY (TAKE 1 TABLET (10 MG TOTAL) BY MOUTH EVERY DAY)
     Route: 048
  15. FENOFIBRATE [Concomitant]
     Active Substance: FENOFIBRATE
     Dosage: 160 MG, 1X/DAY (TAKE 1 TABLET (160 MG TOTAL) BY MOUTH EVERY DAY)
     Route: 048
  16. FLUOXETINE [Concomitant]
     Active Substance: FLUOXETINE HYDROCHLORIDE
     Dosage: 20 MG, 3X/DAY (TAKE 3 TABLETS (60 MG TOTAL) BY MOUTH EVERY DAY)
     Route: 048
  17. ADVAIR HFA [Concomitant]
     Active Substance: FLUTICASONE PROPIONATE\SALMETEROL XINAFOATE
     Dosage: 1 IU, 2X/DAY (INHALE 1 PUFF EVERY 12 HOURS)
     Route: 055
  18. FOLIC ACID [Concomitant]
     Active Substance: FOLIC ACID
     Dosage: 1 MG, 1X/DAY (TAKE 1 TABLET (1 MG TOTAL) BY MOUTH EVERY DAY)
     Route: 048
  19. COZAAR [Concomitant]
     Active Substance: LOSARTAN POTASSIUM
     Indication: Hypertension
     Dosage: 100 MG, 1X/DAY (TAKE 1 TABLET (100 MG TOTAL) BY MOUTH EVERY DAY)
     Route: 048
  20. PRILOSEC [Concomitant]
     Active Substance: OMEPRAZOLE MAGNESIUM
     Dosage: 20 MG, 1X/DAY (TAKE ONE CAPSULE (20 MG TOTAL) BY MOUTH EVERY MORNING BEFORE BREAKFAST)
     Route: 048

REACTIONS (1)
  - Malaise [Unknown]
